FAERS Safety Report 21286887 (Version 1)
Quarter: 2022Q3

REPORT INFORMATION
  Report Type: Spontaneous
  Country: US (occurrence: US)
  Receive Date: 20220902
  Receipt Date: 20220902
  Transmission Date: 20221026
  Serious: Yes (Other)
  Sender: FDA-Public Use
  Company Number: US-BAYER-2022A123096

PATIENT
  Age: 33 Year
  Sex: Male

DRUGS (1)
  1. JIVI [Suspect]
     Active Substance: DAMOCTOCOG ALFA PEGOL
     Dosage: 6000 IU
     Route: 042

REACTIONS (5)
  - Haemarthrosis [None]
  - Haemarthrosis [None]
  - Haemorrhage [None]
  - Haemarthrosis [None]
  - Fall [None]

NARRATIVE: CASE EVENT DATE: 20220829
